FAERS Safety Report 8880654 (Version 2)
Quarter: 2014Q2

REPORT INFORMATION
  Report Type: Spontaneous
  Country: CA (occurrence: CA)
  Receive Date: 20121101
  Receipt Date: 20131018
  Transmission Date: 20141212
  Serious: Yes (Other)
  Sender: FDA-Public Use
  Company Number: CA-PFIZER INC-2011136872

PATIENT
  Age: 18 Year
  Sex: Female

DRUGS (5)
  1. DILANTIN [Suspect]
     Indication: EPILEPSY
     Dosage: 300MG 5 DAYS A WEEK AND 175MG 2 DAYS A WEEK
     Dates: start: 1974
  2. DILANTIN [Suspect]
     Dosage: 100 MG, 3X/DAY
  3. DILANTIN [Suspect]
     Dosage: 300 MG, 1X/DAY AT BEDTIME
     Dates: end: 20111027
  4. PHENOBARBITAL [Suspect]
     Indication: EPILEPSY
     Dosage: 75 MG, 1X/DAY IN MORNING
  5. PHENOBARBITAL [Suspect]
     Dosage: 90 MG, 1X/DAY IN MORNING
     Dates: end: 20111027

REACTIONS (10)
  - Suicidal ideation [Recovered/Resolved]
  - Depression [Recovered/Resolved]
  - Gallbladder disorder [Unknown]
  - Drop attacks [Recovered/Resolved]
  - Somnolence [Recovered/Resolved]
  - Paraesthesia [Recovered/Resolved]
  - Paraesthesia oral [Recovered/Resolved]
  - Coordination abnormal [Recovered/Resolved]
  - Dysarthria [Recovered/Resolved]
  - Asthenia [Recovered/Resolved]
